FAERS Safety Report 13291185 (Version 1)
Quarter: 2017Q1

REPORT INFORMATION
  Report Type: Spontaneous
  Country: US (occurrence: US)
  Receive Date: 20170302
  Receipt Date: 20170302
  Transmission Date: 20170428
  Serious: No
  Sender: FDA-Public Use
  Company Number: US-PERRIGO-16US001041

PATIENT
  Sex: Male

DRUGS (1)
  1. LOPERAMIDE HYDROCHLORIDE. [Suspect]
     Active Substance: LOPERAMIDE HYDROCHLORIDE
     Indication: PRODUCT USED FOR UNKNOWN INDICATION
     Dosage: TOTAL OF 12 MG, IN 24 HOURS
     Route: 048
     Dates: start: 201602, end: 201602

REACTIONS (1)
  - Overdose [Recovered/Resolved]

NARRATIVE: CASE EVENT DATE: 201602
